FAERS Safety Report 6954856-9 (Version None)
Quarter: 2010Q3

REPORT INFORMATION
  Report Type: 
  Country: None (occurrence: None)
  Receive Date: 20100830
  Receipt Date: 20100824
  Transmission Date: 20110219
  Serious: Yes (Hospitalization)
  Sender: FDA-Public Use
  Company Number: US-BAYER-201018171BCC

PATIENT
  Age: 65 Year
  Sex: Female
  Weight: 66 kg

DRUGS (4)
  1. ALEVE [Suspect]
     Indication: BACK PAIN
     Dosage: TOTAL DAILY DOSE: 220 MG  UNIT DOSE: 220 MG
     Route: 048
     Dates: start: 20100714
  2. CALTRATE [Concomitant]
     Route: 065
  3. NATURE'S WAY FISH OIL [Concomitant]
     Route: 065
  4. LIPITOR [Concomitant]
     Route: 065

REACTIONS (7)
  - DRUG HYPERSENSITIVITY [None]
  - FEELING HOT [None]
  - GENERALISED ERYTHEMA [None]
  - HEART RATE INCREASED [None]
  - PRURITUS [None]
  - SWELLING FACE [None]
  - URTICARIA [None]
